FAERS Safety Report 9548955 (Version 1)
Quarter: 2013Q3

REPORT INFORMATION
  Report Type: Report from Study
  Country: AR (occurrence: AR)
  Receive Date: 20130924
  Receipt Date: 20130924
  Transmission Date: 20140515
  Serious: Yes (Hospitalization)
  Sender: FDA-Public Use
  Company Number: PHHY2013AR106105

PATIENT
  Sex: Female

DRUGS (1)
  1. EXFORGE [Suspect]
     Indication: HYPERTENSION
     Dosage: 2 DF(160/5MG), DAILY
     Route: 048

REACTIONS (2)
  - Fluid retention [Recovering/Resolving]
  - Blood pressure decreased [Recovering/Resolving]
